FAERS Safety Report 20650117 (Version 3)
Quarter: 2022Q3

REPORT INFORMATION
  Report Type: Report from Study
  Country: US (occurrence: US)
  Receive Date: 20220329
  Receipt Date: 20220728
  Transmission Date: 20221027
  Serious: Yes (Other)
  Sender: FDA-Public Use
  Company Number: US-MYLANLABS-2022M1022873

PATIENT
  Age: 16 Year
  Sex: Female
  Weight: 78 kg

DRUGS (2)
  1. AMNESTEEM [Suspect]
     Active Substance: ISOTRETINOIN
     Indication: Acne
     Dosage: 40 MILLIGRAM, BID
     Route: 048
     Dates: start: 20211119, end: 20220322
  2. AMNESTEEM [Suspect]
     Active Substance: ISOTRETINOIN
     Dosage: 40 MILLIGRAM, BID (USED SPORADICALLY)
     Route: 048
     Dates: start: 20211122

REACTIONS (2)
  - Maternal exposure during pregnancy [Unknown]
  - Inappropriate schedule of product administration [Unknown]

NARRATIVE: CASE EVENT DATE: 20220322
